FAERS Safety Report 5043274-9 (Version None)
Quarter: 2006Q3

REPORT INFORMATION
  Report Type: 
  Country: None (occurrence: None)
  Receive Date: 20060703
  Receipt Date: 20060703
  Transmission Date: 20061208
  Serious: Yes (Other)
  Sender: FDA-Public Use
  Company Number: None

PATIENT
  Age: 64 Year
  Sex: Male
  Weight: 90.3 kg

DRUGS (2)
  1. LISINOPRIL [Suspect]
  2. SIMVASTATIN [Concomitant]

REACTIONS (1)
  - COUGH [None]
